FAERS Safety Report 6303708-6 (Version None)
Quarter: 2009Q3

REPORT INFORMATION
  Report Type: 
  Country: None (occurrence: None)
  Receive Date: 20090810
  Receipt Date: 20090803
  Transmission Date: 20100115
  Serious: Yes (Other)
  Sender: FDA-Public Use
  Company Number: US-AMGEN-KDL358851

PATIENT
  Sex: Female
  Weight: 37.2 kg

DRUGS (8)
  1. PROCRIT [Suspect]
     Indication: MYELODYSPLASTIC SYNDROME
     Route: 058
     Dates: start: 20080101
  2. PROTONIX [Concomitant]
  3. CARDIZEM [Concomitant]
     Route: 048
  4. IMDUR [Concomitant]
     Route: 048
  5. ASPIRIN [Concomitant]
     Route: 048
  6. FOLIC ACID [Concomitant]
     Route: 048
  7. CRESTOR [Concomitant]
     Route: 048
  8. FLOVENT [Concomitant]
     Route: 045

REACTIONS (10)
  - ASTHENIA [None]
  - DECREASED ACTIVITY [None]
  - DYSPNOEA [None]
  - FATIGUE [None]
  - FEELING ABNORMAL [None]
  - INFLUENZA LIKE ILLNESS [None]
  - NAUSEA [None]
  - PALPITATIONS [None]
  - PARAESTHESIA [None]
  - WEIGHT DECREASED [None]
